FAERS Safety Report 14142458 (Version 2)
Quarter: 2018Q2

REPORT INFORMATION
  Report Type: Spontaneous
  Country: FR (occurrence: FR)
  Receive Date: 20171030
  Receipt Date: 20180427
  Transmission Date: 20180711
  Serious: Yes (Other)
  Sender: FDA-Public Use
  Company Number: FR-MERCK KGAA-2032704

PATIENT
  Age: 61 Year
  Sex: Female
  Weight: 52 kg

DRUGS (1)
  1. NOVOTHYROX [Suspect]
     Active Substance: LEVOTHYROXINE SODIUM
     Indication: HYPOTHYROIDISM
     Route: 048
     Dates: start: 20170415, end: 20171117

REACTIONS (6)
  - Tachycardia [Recovered/Resolved]
  - Asthenia [Recovered/Resolved]
  - Diffuse alopecia [Recovered/Resolved]
  - Blood thyroid stimulating hormone decreased [Recovered/Resolved]
  - Muscle spasms [Recovered/Resolved]
  - Blood thyroid stimulating hormone [Not Recovered/Not Resolved]

NARRATIVE: CASE EVENT DATE: 20170519
